FAERS Safety Report 16238142 (Version 1)
Quarter: 2019Q2

REPORT INFORMATION
  Report Type: Spontaneous
  Country: US (occurrence: US)
  Receive Date: 20190425
  Receipt Date: 20190425
  Transmission Date: 20190711
  Serious: No
  Sender: FDA-Public Use
  Company Number: US-TEVA-2019-US-1032733

PATIENT
  Age: 90 Year
  Sex: Male

DRUGS (2)
  1. MUPIROCIN OINTMENT [Suspect]
     Active Substance: MUPIROCIN
     Indication: CELLULITIS
     Dates: start: 201901
  2. LASIX [Concomitant]
     Active Substance: FUROSEMIDE

REACTIONS (6)
  - Nasal pruritus [Unknown]
  - Hypoaesthesia [Unknown]
  - Upper-airway cough syndrome [Unknown]
  - Paraesthesia [Unknown]
  - Pain [Unknown]
  - Middle insomnia [Unknown]

NARRATIVE: CASE EVENT DATE: 201901
